FAERS Safety Report 7998528-0 (Version None)
Quarter: 2011Q4

REPORT INFORMATION
  Report Type: 
  Country: None (occurrence: None)
  Receive Date: 20111221
  Receipt Date: 20111215
  Transmission Date: 20120403
  Serious: No
  Sender: FDA-Public Use
  Company Number: US-B.I. PHARMACEUTICALS,INC./RIDGEFIELD-2011-BP-28233BP

PATIENT
  Sex: Female

DRUGS (10)
  1. COZAAR [Concomitant]
     Indication: HYPERTENSION
     Route: 048
  2. ALLOPURINOL [Concomitant]
     Route: 048
  3. CATAPRES-TTS-1 [Suspect]
     Indication: HYPERTENSION
     Dosage: 0.1 MG
     Route: 023
     Dates: start: 20080101
  4. BONIVA [Concomitant]
     Indication: OSTEOPOROSIS
  5. CYCLOSPORINE [Concomitant]
     Indication: HEPATIC NEOPLASM MALIGNANT
     Route: 048
  6. VICODIN [Concomitant]
     Indication: BONE PAIN
     Route: 048
  7. TENORMIN [Concomitant]
     Indication: HYPERTENSION
     Route: 048
  8. ZANTAC [Concomitant]
     Indication: ABDOMINAL DISCOMFORT
     Route: 048
  9. MEDICATION NOT FURTHER SPECIFIED [Concomitant]
     Indication: HEPATIC NEOPLASM MALIGNANT
  10. MEDICATION NOT FURTHER SPECIFIED [Concomitant]

REACTIONS (2)
  - COUGH [None]
  - BLOOD PRESSURE INCREASED [None]
